FAERS Safety Report 7326373-8 (Version None)
Quarter: 2011Q1

REPORT INFORMATION
  Report Type: 
  Country: None (occurrence: None)
  Receive Date: 20110302
  Receipt Date: 20110221
  Transmission Date: 20110831
  Serious: Yes (Hospitalization)
  Sender: FDA-Public Use
  Company Number: PHHO2010FR19604

PATIENT
  Sex: Male
  Weight: 65 kg

DRUGS (3)
  1. SANDIMMUNE [Suspect]
     Indication: RENAL TRANSPLANT
     Dosage: 2 MG, BID
     Route: 048
     Dates: start: 20100928, end: 20101207
  2. CELLCEPT [Concomitant]
     Indication: RENAL TRANSPLANT
  3. CORTANCYL [Concomitant]

REACTIONS (10)
  - PURULENT DISCHARGE [None]
  - LYMPHOCELE MARSUPIALISATION [None]
  - HYDRONEPHROSIS [None]
  - MYALGIA [None]
  - PYREXIA [None]
  - ASTHENIA [None]
  - URETHRAL STENOSIS [None]
  - INFECTED LYMPHOCELE [None]
  - STAPHYLOCOCCAL INFECTION [None]
  - ABDOMINAL DISTENSION [None]
